FAERS Safety Report 23420928 (Version 1)
Quarter: 2024Q1

REPORT INFORMATION
  Report Type: Spontaneous
  Country: CA (occurrence: CA)
  Receive Date: 20240119
  Receipt Date: 20240119
  Transmission Date: 20240410
  Serious: Yes (Hospitalization)
  Sender: FDA-Public Use
  Company Number: None

PATIENT
  Age: 78 Year
  Sex: Male
  Weight: 73 kg

DRUGS (22)
  1. CARBOPLATIN [Suspect]
     Active Substance: CARBOPLATIN
     Indication: Product used for unknown indication
     Dosage: ONCE
     Route: 042
  2. ETOPOSIDE [Suspect]
     Active Substance: ETOPOSIDE
     Indication: Lung neoplasm malignant
     Dosage: ONCE
     Route: 042
  3. VEPESID [Suspect]
     Active Substance: ETOPOSIDE
     Indication: Lung neoplasm malignant
     Dosage: 2 EVERY 1 DAYS
     Route: 048
  4. ATORVASTATIN [Concomitant]
     Active Substance: ATORVASTATIN
     Route: 048
  5. BACTROBAN [Concomitant]
     Active Substance: MUPIROCIN CALCIUM
  6. BISOPROLOL [Concomitant]
     Active Substance: BISOPROLOL\BISOPROLOL FUMARATE
  7. CLOTRIMAZOLE [Concomitant]
     Active Substance: CLOTRIMAZOLE
  8. CHLORPROMAZINE [Concomitant]
     Active Substance: CHLORPROMAZINE
  9. CYCLOPENTOLATE [Concomitant]
     Active Substance: CYCLOPENTOLATE
     Dosage: DOSAGE FORM: SOLUTION OPHTHALMIC
  10. EZETIMIBE [Concomitant]
     Active Substance: EZETIMIBE
  11. FERROUS SULFATE [Concomitant]
     Active Substance: FERROUS SULFATE
  12. GLICLAZIDE [Concomitant]
     Active Substance: GLICLAZIDE
  13. INSULIN DEGLUDEC [Concomitant]
     Active Substance: INSULIN DEGLUDEC
     Route: 058
  14. POLYETHYLENE GLYCOL [Concomitant]
     Active Substance: POLYETHYLENE GLYCOL
     Dosage: DOSAGE FORM: POWDER FOR SOLUTION ORAL
  15. MAGNESIUM CITRATE [Concomitant]
     Active Substance: MAGNESIUM CITRATE
  16. METFORMIN [Concomitant]
     Active Substance: METFORMIN HYDROCHLORIDE
  17. MIRTAZAPINE [Concomitant]
     Active Substance: MIRTAZAPINE
  18. SEMAGLUTIDE [Concomitant]
     Active Substance: SEMAGLUTIDE
     Dosage: DOSAGE FORM: SOLUTION SUBCUTANEOUS
  19. PANTOPRAZOLE [Concomitant]
     Active Substance: PANTOPRAZOLE
     Dosage: DOSAGE FORM: POWDER FOR SOLUTION INTRAVENOUS
  20. PREDNISONE [Concomitant]
     Active Substance: PREDNISONE
  21. VITAMIN B12 [Concomitant]
     Active Substance: CYANOCOBALAMIN
  22. ZOLEDRONIC ACID [Concomitant]
     Active Substance: ZOLEDRONIC ACID

REACTIONS (4)
  - Blood pressure abnormal [Recovered/Resolved]
  - Body temperature abnormal [Recovered/Resolved]
  - Febrile neutropenia [Recovered/Resolved]
  - White blood cell disorder [Recovered/Resolved]
